FAERS Safety Report 10241007 (Version 7)
Quarter: 2015Q1

REPORT INFORMATION
  Report Type: Report from Study
  Country: US (occurrence: US)
  Receive Date: 20140617
  Receipt Date: 20150320
  Transmission Date: 20150720
  Serious: Yes (Other)
  Sender: FDA-Public Use
  Company Number: US-SANOFI-AVENTIS-2013SA031158

PATIENT
  Age: 59 Year
  Sex: Male

DRUGS (5)
  1. AUBAGIO [Suspect]
     Active Substance: TERIFLUNOMIDE
     Indication: MULTIPLE SCLEROSIS
     Dosage: STARTED SINCE 15 DAYS.
     Route: 048
     Dates: start: 20130304, end: 20130920
  2. FUROSEMIDE. [Concomitant]
     Active Substance: FUROSEMIDE
     Indication: BLOOD PRESSURE
  3. AUBAGIO [Suspect]
     Active Substance: TERIFLUNOMIDE
     Indication: MULTIPLE SCLEROSIS
     Route: 065
     Dates: start: 20140917, end: 20150317
  4. AUBAGIO [Suspect]
     Active Substance: TERIFLUNOMIDE
     Indication: MULTIPLE SCLEROSIS
     Dosage: STARTED SINCE 15 DAYS.
     Route: 048
     Dates: start: 20131020, end: 20140630
  5. OMEPRAZOLE. [Concomitant]
     Active Substance: OMEPRAZOLE

REACTIONS (17)
  - Nasal congestion [Recovered/Resolved]
  - Back pain [Unknown]
  - Head injury [Unknown]
  - Fatigue [Unknown]
  - Oedema peripheral [Recovering/Resolving]
  - Liver function test abnormal [Recovered/Resolved]
  - Accident [Unknown]
  - Abdominal discomfort [Recovering/Resolving]
  - Paraesthesia [Unknown]
  - Paranasal sinus discomfort [Not Recovered/Not Resolved]
  - Intervertebral disc protrusion [Unknown]
  - Asthenia [Unknown]
  - Unevaluable event [Unknown]
  - Rhinorrhoea [Recovered/Resolved]
  - Dyspepsia [Recovering/Resolving]
  - Nasopharyngitis [Recovered/Resolved]
  - Blood pressure increased [Not Recovered/Not Resolved]

NARRATIVE: CASE EVENT DATE: 201404
